FAERS Safety Report 10472942 (Version 2)
Quarter: 2014Q3

REPORT INFORMATION
  Report Type: Spontaneous
  Country: CN (occurrence: CN)
  Receive Date: 20140924
  Receipt Date: 20140924
  Transmission Date: 20150326
  Serious: Yes (Death)
  Sender: FDA-Public Use
  Company Number: CN-OTSUKA-US-2014-11465

PATIENT

DRUGS (7)
  1. BUSULFEX [Suspect]
     Active Substance: BUSULFAN
     Indication: STEM CELL TRANSPLANT
     Dosage: 3.2 MG/KG, DAILY DOSE
     Route: 042
  2. CYCLOPHOSPHAMIDE. [Suspect]
     Active Substance: CYCLOPHOSPHAMIDE
     Indication: STEM CELL TRANSPLANT
     Dosage: 60 MG/KG, DAILY DOSE
     Route: 065
  3. HEPARIN [Concomitant]
     Active Substance: HEPARIN SODIUM
     Indication: PROPHYLAXIS
     Route: 065
  4. SULFAMETHOXAZOLE [Concomitant]
     Active Substance: SULFAMETHOXAZOLE
     Indication: ANTIFUNGAL PROPHYLAXIS
     Route: 065
  5. PROSTAGLANDIN E1 [Concomitant]
     Active Substance: ALPROSTADIL
     Indication: PROPHYLAXIS
     Route: 065
  6. PHENYTOIN. [Concomitant]
     Active Substance: PHENYTOIN
     Indication: PROPHYLAXIS
     Route: 065
  7. GANCICLOVIR [Concomitant]
     Active Substance: GANCICLOVIR
     Indication: PROPHYLAXIS
     Route: 065

REACTIONS (2)
  - Off label use [Unknown]
  - Cardiac failure acute [Fatal]
